FAERS Safety Report 6137016-3 (Version None)
Quarter: 2009Q1

REPORT INFORMATION
  Report Type: 
  Country: None (occurrence: None)
  Receive Date: 20090326
  Receipt Date: 20090312
  Transmission Date: 20090719
  Serious: Yes (Congenital Anomaly)
  Sender: FDA-Public Use
  Company Number: CHPA2009US07144

PATIENT
  Sex: 0

DRUGS (1)
  1. TIOCONAZOLE [Suspect]
     Dosage: TRANSPLACENTAL
     Route: 064

REACTIONS (2)
  - CRANIOSYNOSTOSIS [None]
  - DRUG EXPOSURE DURING PREGNANCY [None]
